FAERS Safety Report 6790460-3 (Version None)
Quarter: 2010Q2

REPORT INFORMATION
  Report Type: 
  Country: None (occurrence: None)
  Receive Date: 20100624
  Receipt Date: 20100623
  Transmission Date: 20101027
  Serious: Yes (Other)
  Sender: FDA-Public Use
  Company Number: US-PERRIGO-10US009645

PATIENT
  Age: 42 Year
  Sex: Female
  Weight: 63.492 kg

DRUGS (1)
  1. LORATADINE 10 MG 612 [Suspect]
     Indication: DRUG USE FOR UNKNOWN INDICATION
     Dosage: 10 MG DAILY
     Route: 048
     Dates: start: 20060416, end: 20100414

REACTIONS (6)
  - ABDOMINAL DISTENSION [None]
  - ATONIC URINARY BLADDER [None]
  - BLADDER DILATATION [None]
  - DRUG HYPERSENSITIVITY [None]
  - LOSS OF CONSCIOUSNESS [None]
  - URINARY RETENTION [None]
